FAERS Safety Report 6533648-9 (Version None)
Quarter: 2010Q1

REPORT INFORMATION
  Report Type: 
  Country: None (occurrence: None)
  Receive Date: 20100108
  Receipt Date: 20100108
  Transmission Date: 20100710
  Serious: Yes (Hospitalization)
  Sender: FDA-Public Use
  Company Number: None

PATIENT
  Age: 65 Year
  Sex: Male
  Weight: 110.8 kg

DRUGS (1)
  1. REPAGLINIDE [Suspect]
     Indication: DIABETES MELLITUS
     Dosage: 0.5 MG AT BEDTIME PO
     Route: 048
     Dates: start: 20091005, end: 20091221

REACTIONS (16)
  - BLOOD BILIRUBIN INCREASED [None]
  - CHOLECYSTITIS [None]
  - HAEMATOCRIT DECREASED [None]
  - HAEMOGLOBIN DECREASED [None]
  - HEPATIC STEATOSIS [None]
  - JAUNDICE [None]
  - LIVER DISORDER [None]
  - MEAN CELL HAEMOGLOBIN CONCENTRATION DECREASED [None]
  - MEAN CELL VOLUME INCREASED [None]
  - PANCREATIC MASS [None]
  - PLATELET COUNT DECREASED [None]
  - PROTEIN TOTAL DECREASED [None]
  - RED BLOOD CELL COUNT DECREASED [None]
  - SPLENOMEGALY [None]
  - TRANSAMINASES ABNORMAL [None]
  - WHITE BLOOD CELL COUNT INCREASED [None]
